FAERS Safety Report 5874165-9 (Version None)
Quarter: 2008Q3

REPORT INFORMATION
  Report Type: 
  Country: None (occurrence: None)
  Receive Date: 20080905
  Receipt Date: 20080905
  Transmission Date: 20090109
  Serious: Yes (Other)
  Sender: FDA-Public Use
  Company Number: None

PATIENT
  Sex: Female
  Weight: 170.0989 kg

DRUGS (2)
  1. SINGULAIR [Suspect]
     Indication: ASTHMA
     Dosage: 10 MG TABLET 1 PILL AT BEDTIME PO
     Route: 048
  2. SINGULAIR [Suspect]
     Indication: HYPERSENSITIVITY
     Dosage: 10 MG TABLET 1 PILL AT BEDTIME PO
     Route: 048

REACTIONS (10)
  - ABNORMAL DREAMS [None]
  - CONDITION AGGRAVATED [None]
  - FATIGUE [None]
  - FEELING ABNORMAL [None]
  - HYPERSOMNIA [None]
  - INDIFFERENCE [None]
  - SLEEP TERROR [None]
  - SUICIDAL IDEATION [None]
  - UNEMPLOYMENT [None]
  - WEIGHT INCREASED [None]
